FAERS Safety Report 4899246-8 (Version None)
Quarter: 2006Q1

REPORT INFORMATION
  Report Type: 
  Country: None (occurrence: None)
  Receive Date: 20060131
  Receipt Date: 20060118
  Transmission Date: 20060701
  Serious: Yes (Hospitalization)
  Sender: FDA-Public Use
  Company Number: HQWYE436919JAN06

PATIENT
  Age: 61 Year
  Sex: Female

DRUGS (5)
  1. EFFEXOR XR [Suspect]
     Indication: ANXIETY
     Dosage: 375 MG 1X PER 1 DAY ORAL
     Route: 048
  2. EFFEXOR XR [Suspect]
     Indication: DEPRESSION
     Dosage: 375 MG 1X PER 1 DAY ORAL
     Route: 048
  3. DIAZEPAM [Concomitant]
  4. LOSEC (OMEPRAZOLE) [Concomitant]
  5. GLICLAZIDE (GLICLAZIDE) [Concomitant]

REACTIONS (7)
  - AGORAPHOBIA [None]
  - CONDITION AGGRAVATED [None]
  - DYSPNOEA [None]
  - IRRITABLE BOWEL SYNDROME [None]
  - PSYCHIATRIC SYMPTOM [None]
  - SELF ESTEEM DECREASED [None]
  - SLEEP DISORDER [None]
